FAERS Safety Report 16004232 (Version 2)
Quarter: 2019Q1

REPORT INFORMATION
  Report Type: Spontaneous
  Country: FR (occurrence: FR)
  Receive Date: 20190225
  Receipt Date: 20190225
  Transmission Date: 20190418
  Serious: Yes (Hospitalization)
  Sender: FDA-Public Use
  Company Number: FR-TEVA-2019-FR-1014633

PATIENT
  Age: 67 Year
  Sex: Male
  Weight: 66 kg

DRUGS (3)
  1. AUGMENTIN [Suspect]
     Active Substance: AMOXICILLIN\CLAVULANATE POTASSIUM
     Indication: PLEURISY
     Dosage: 3 GRAM DAILY;
     Route: 048
     Dates: start: 20190102, end: 20190123
  2. PARACETAMOL [Concomitant]
     Active Substance: ACETAMINOPHEN
     Indication: PAIN
     Dosage: 1 GRAM DAILY;
     Route: 048
     Dates: start: 20190102, end: 20190122
  3. AMOXICILLINE [Suspect]
     Active Substance: AMOXICILLIN
     Indication: PLEURISY
     Dosage: 33 GRAM DAILY;
     Route: 048
     Dates: start: 20190102, end: 20190123

REACTIONS (3)
  - Eosinophilia [Recovering/Resolving]
  - Rash maculo-papular [Recovering/Resolving]
  - Pruritus [Recovering/Resolving]

NARRATIVE: CASE EVENT DATE: 20190121
